FAERS Safety Report 9130781 (Version 2)
Quarter: 2013Q1

REPORT INFORMATION
  Report Type: Spontaneous
  Country: DK (occurrence: DK)
  Receive Date: 20130301
  Receipt Date: 20130319
  Transmission Date: 20140127
  Serious: Yes (Other)
  Sender: FDA-Public Use
  Company Number: DK-CELGENEUS-044-21660-13022854

PATIENT
  Sex: Female

DRUGS (9)
  1. ABRAXANE [Suspect]
     Indication: BREAST CANCER METASTATIC
     Route: 041
  2. HERCEPTIN [Concomitant]
     Indication: BREAST CANCER METASTATIC
     Route: 065
     Dates: start: 201201
  3. HERCEPTIN [Concomitant]
     Route: 065
     Dates: end: 201002
  4. XELODA [Concomitant]
     Indication: BREAST CANCER METASTATIC
     Route: 065
     Dates: start: 201105, end: 201201
  5. DOCETAXEL [Concomitant]
     Indication: BREAST CANCER METASTATIC
     Route: 065
     Dates: start: 201206
  6. ERIBULIN [Concomitant]
     Indication: BREAST CANCER METASTATIC
     Route: 065
  7. VINORELBINE [Concomitant]
     Indication: BREAST CANCER METASTATIC
     Route: 065
     Dates: end: 201002
  8. LAPATINIB [Concomitant]
     Indication: BREAST CANCER
     Route: 065
     Dates: start: 201105, end: 201201
  9. GEMCITABINE HYDROCHLORIDE [Concomitant]
     Indication: BREAST CANCER
     Route: 065
     Dates: start: 201201

REACTIONS (3)
  - Haematotoxicity [Unknown]
  - Breast cancer [Not Recovered/Not Resolved]
  - Ejection fraction abnormal [Unknown]
